FAERS Safety Report 18688023 (Version 5)
Quarter: 2021Q2

REPORT INFORMATION
  Report Type: Spontaneous
  Country: US (occurrence: US)
  Receive Date: 20201231
  Receipt Date: 20210604
  Transmission Date: 20210717
  Serious: Yes (Other)
  Sender: FDA-Public Use
  Company Number: US-GLAXOSMITHKLINE-US2020252586

PATIENT
  Sex: Male

DRUGS (2)
  1. TRELEGY ELLIPTA [Suspect]
     Active Substance: FLUTICASONE FUROATE\UMECLIDINIUM BROMIDE\VILANTEROL TRIFENATATE
     Indication: PRODUCT USED FOR UNKNOWN INDICATION
     Dosage: 1 PUFF(S), QD
     Route: 055
     Dates: start: 202012, end: 202105
  2. TRELEGY ELLIPTA [Suspect]
     Active Substance: FLUTICASONE FUROATE\UMECLIDINIUM BROMIDE\VILANTEROL TRIFENATATE
     Indication: PRODUCT USED FOR UNKNOWN INDICATION
     Dosage: UNK, 100/62.5/25UG
     Route: 055
     Dates: start: 202011

REACTIONS (7)
  - Pulmonary haemorrhage [Recovered/Resolved]
  - Underdose [Unknown]
  - Heart rate increased [Recovered/Resolved]
  - Pulmonary pain [Recovered/Resolved]
  - Haemoptysis [Recovered/Resolved]
  - Product complaint [Unknown]
  - Dyspnoea [Recovered/Resolved]
